FAERS Safety Report 4307439-3 (Version None)
Quarter: 2004Q1

REPORT INFORMATION
  Report Type: 
  Country: None (occurrence: None)
  Receive Date: 20040226
  Receipt Date: 20040216
  Transmission Date: 20041129
  Serious: Yes (Hospitalization)
  Sender: FDA-Public Use
  Company Number: JP-JNJFOC-20031203651

PATIENT
  Age: 52 Year
  Sex: Female
  Weight: 49 kg

DRUGS (13)
  1. REMICADE [Suspect]
     Indication: RHEUMATOID ARTHRITIS
     Dosage: SEE IMAGE
     Route: 041
     Dates: start: 20031018, end: 20031018
  2. REMICADE [Suspect]
     Indication: RHEUMATOID ARTHRITIS
     Dosage: SEE IMAGE
     Route: 041
     Dates: start: 20030906
  3. REMICADE [Suspect]
     Indication: RHEUMATOID ARTHRITIS
     Dosage: SEE IMAGE
     Route: 041
     Dates: start: 20030920
  4. RHEUMATREX [Suspect]
     Indication: DRUG USE FOR UNKNOWN INDICATION
     Dosage: 7.5 MG, IN 1 WEEK
     Dates: start: 19980610
  5. BACTRIM [Suspect]
     Indication: PNEUMOCYSTIS CARINII INFECTION
     Dates: start: 20040107, end: 20040129
  6. MEDROL [Concomitant]
  7. METHOTREXATE [Concomitant]
  8. INFREE S (INDOMETACIN) CAPSULES [Concomitant]
  9. FOLIAMIN (FOLIC ACID) TABLETS [Concomitant]
  10. GASTER (FAMOTIDINE) TABLETS [Concomitant]
  11. CONIEL (BENIDIPINE HYDROCHLORIDE) TABLETS [Concomitant]
  12. DEPAS (ETIZOLAM) TABLETS [Concomitant]
  13. MUCOSTA (REBAMIPIDE) TABLETS [Concomitant]

REACTIONS (10)
  - ALANINE AMINOTRANSFERASE INCREASED [None]
  - ASPARTATE AMINOTRANSFERASE INCREASED [None]
  - CYTOMEGALOVIRUS ANTIGEN POSITIVE [None]
  - DRUG INTERACTION [None]
  - GAMMA-GLUTAMYLTRANSFERASE INCREASED [None]
  - INFECTION IN AN IMMUNOCOMPROMISED HOST [None]
  - LIVER DISORDER [None]
  - PNEUMOCYSTIS CARINII PNEUMONIA [None]
  - PNEUMONIA [None]
  - RESPIRATORY DISTRESS [None]
